FAERS Safety Report 17416857 (Version 2)
Quarter: 2021Q4

REPORT INFORMATION
  Report Type: Report from Study
  Country: CA (occurrence: CA)
  Receive Date: 20200213
  Receipt Date: 20211228
  Transmission Date: 20220304
  Serious: Yes (Hospitalization)
  Sender: FDA-Public Use
  Company Number: CA-JNJFOC-20200210316

PATIENT
  Age: 62 Year
  Sex: Male

DRUGS (2)
  1. STELARA [Suspect]
     Active Substance: USTEKINUMAB
     Indication: Crohn^s disease
     Dosage: THERAPY START DATE ALSO GIVEN AS 22-DEC-2017
     Route: 058
     Dates: start: 20171201
  2. STELARA [Suspect]
     Active Substance: USTEKINUMAB
     Dosage: DOSE OPTIMIZATION
     Route: 058
     Dates: start: 20180828

REACTIONS (1)
  - Intestinal resection [Unknown]
